FAERS Safety Report 9499640 (Version 1)
Quarter: 2013Q3

REPORT INFORMATION
  Report Type: Spontaneous
  Country: US (occurrence: None)
  Receive Date: 20130903
  Receipt Date: 20130903
  Transmission Date: 20140515
  Serious: Yes (Other)
  Sender: FDA-Public Use
  Company Number: None

PATIENT
  Age: 23 Year
  Sex: Male

DRUGS (2)
  1. REMERON [Suspect]
     Route: 048
  2. REMERON [Suspect]
     Route: 048

REACTIONS (3)
  - Aggression [None]
  - Aggression [None]
  - Drug ineffective [None]
